FAERS Safety Report 16687886 (Version 4)
Quarter: 2020Q2

REPORT INFORMATION
  Report Type: Report from Study
  Country: BR (occurrence: BR)
  Receive Date: 20190809
  Receipt Date: 20200605
  Transmission Date: 20200713
  Serious: Yes (Hospitalization)
  Sender: FDA-Public Use
  Company Number: BR-AMERICAN REGENT INC-2019001680

PATIENT
  Age: 40 Year
  Sex: Female
  Weight: 58 kg

DRUGS (10)
  1. MODULEN IBD [Concomitant]
     Active Substance: CARBOHYDRATES\FATTY ACIDS\MINERALS\PROTEIN\VITAMINS
     Indication: CROHN^S DISEASE
     Dosage: UNK, APPROXIMATELY 6 MONTHS AGO
     Route: 065
     Dates: start: 2019
  2. ENTYVIO [Suspect]
     Active Substance: VEDOLIZUMAB
     Dosage: 300 MG, 1 IN 6 WK
     Dates: start: 201909
  3. ENTYVIO [Suspect]
     Active Substance: VEDOLIZUMAB
     Dosage: 300 MILLIGRAM
     Dates: start: 201905
  4. VITAMIN C [Concomitant]
     Active Substance: ASCORBIC ACID
     Indication: METABOLIC SURGERY
     Dosage: UNK
     Route: 065
  5. MALTOFER (FERRIC (III) HYDROXIDE POLYMALTOSE) [Suspect]
     Active Substance: IRON POLYMALTOSE
     Indication: ANAEMIA
     Dosage: 1 TABLET (100 MG, 3 IN 1 D)
     Route: 048
     Dates: start: 2019, end: 201906
  6. ENTYVIO [Suspect]
     Active Substance: VEDOLIZUMAB
     Indication: CROHN^S DISEASE
     Dosage: 0, 2, 6/ EVERY 8 WEEKS AND THEN EVERY 6 WEEKS (300 MG)
     Dates: start: 20190503
  7. EUTHYROX [Concomitant]
     Active Substance: LEVOTHYROXINE SODIUM
     Indication: THYROID DISORDER
     Dosage: UNK
     Route: 065
  8. EXJADE [Suspect]
     Active Substance: DEFERASIROX
     Indication: LIVER IRON CONCENTRATION ABNORMAL
     Dosage: DAILY/NOT ALL DAYS (500 MG)
     Route: 065
     Dates: start: 201906, end: 201909
  9. VENOFER [Suspect]
     Active Substance: IRON SUCROSE
     Indication: ANAEMIA
     Dosage: UNK
     Route: 042
     Dates: start: 20190503, end: 201906
  10. ENTYVIO [Suspect]
     Active Substance: VEDOLIZUMAB
     Dosage: 300 MILLIGRAM
     Dates: start: 201906

REACTIONS (15)
  - Aphthous ulcer [Recovered/Resolved]
  - Diarrhoea [Recovered/Resolved]
  - Dizziness [Recovered/Resolved]
  - Nausea [Recovered/Resolved]
  - Nail disorder [Recovered/Resolved]
  - Abdominal pain [Recovered/Resolved]
  - Influenza like illness [Recovered/Resolved]
  - Alopecia [Recovered/Resolved]
  - Weight increased [Recovered/Resolved]
  - Abdominal discomfort [Not Recovered/Not Resolved]
  - Asthenia [Recovered/Resolved]
  - Flatulence [Not Recovered/Not Resolved]
  - Condition aggravated [Not Recovered/Not Resolved]
  - Liver iron concentration abnormal [Recovering/Resolving]
  - Cholelithiasis [Not Recovered/Not Resolved]

NARRATIVE: CASE EVENT DATE: 2019
